FAERS Safety Report 8269490-0 (Version None)
Quarter: 2012Q2

REPORT INFORMATION
  Report Type: 
  Country: None (occurrence: None)
  Receive Date: 20120409
  Receipt Date: 20120323
  Transmission Date: 20120825
  Serious: Yes (Hospitalization)
  Sender: FDA-Public Use
  Company Number: PHEH2011US06684

PATIENT
  Sex: Male
  Weight: 68.027 kg

DRUGS (2)
  1. EXJADE [Suspect]
     Dosage: 2 DF, DAILY
  2. EXJADE [Suspect]
     Indication: HAEMOCHROMATOSIS
     Dosage: 1000 MG
     Route: 048
     Dates: start: 20080101

REACTIONS (4)
  - MALAISE [None]
  - MEDICATION ERROR [None]
  - DIARRHOEA [None]
  - PALPITATIONS [None]
